FAERS Safety Report 6372326-6 (Version None)
Quarter: 2009Q3

REPORT INFORMATION
  Report Type: 
  Country: None (occurrence: None)
  Receive Date: 20090924
  Receipt Date: 20090529
  Transmission Date: 20100115
  Serious: Yes (Hospitalization)
  Sender: FDA-Public Use
  Company Number: US-ASTRAZENECA-2008UW22407

PATIENT
  Age: 21836 Day
  Sex: Male
  Weight: 106.6 kg

DRUGS (4)
  1. SEROQUEL [Suspect]
     Indication: SLEEP DISORDER
     Route: 048
     Dates: start: 20060101
  2. THORAZINE [Concomitant]
     Dosage: 5 MG OR 10 MG
  3. LITHIUM [Concomitant]
     Dates: start: 19800101
  4. WELLBUTRIN [Concomitant]
     Dosage: 2 150MG TABLETS A DAY
     Dates: start: 20070101

REACTIONS (2)
  - BLOOD CHOLESTEROL INCREASED [None]
  - PANCREATITIS [None]
